FAERS Safety Report 8091915-4 (Version None)
Quarter: 2012Q1

REPORT INFORMATION
  Report Type: 
  Country: None (occurrence: None)
  Receive Date: 20120129
  Receipt Date: 20111206
  Transmission Date: 20120608
  Serious: No
  Sender: FDA-Public Use
  Company Number: US-ABBOTT-11P-163-0881236-00

PATIENT
  Age: 60 Year
  Sex: Female

DRUGS (6)
  1. PAXIL [Concomitant]
     Indication: DEPRESSION
  2. METFORMIN HCL [Concomitant]
     Indication: DIABETES MELLITUS
  3. HUMIRA [Suspect]
     Indication: RHEUMATOID ARTHRITIS
     Dates: start: 20110401
  4. AZULFIDINE [Concomitant]
     Indication: SWELLING
  5. SIMVASTATIN [Concomitant]
     Indication: BLOOD CHOLESTEROL
  6. AZULFIDINE [Concomitant]
     Indication: INFLAMMATION

REACTIONS (3)
  - SENSITIVITY OF TEETH [None]
  - TOOTHACHE [None]
  - TOOTH INFECTION [None]
